FAERS Safety Report 4620820-8 (Version None)
Quarter: 2005Q1

REPORT INFORMATION
  Report Type: 
  Country: None (occurrence: None)
  Receive Date: 20050315
  Receipt Date: 20050130
  Transmission Date: 20050727
  Serious: No
  Sender: FDA-Public Use
  Company Number: US-YAMANOUCHI-YPA20050050

PATIENT
  Sex: Female

DRUGS (1)
  1. VESICARE [Suspect]

REACTIONS (2)
  - CONFUSIONAL STATE [None]
  - DIZZINESS [None]
